FAERS Safety Report 5714645-X (Version None)
Quarter: 2008Q2

REPORT INFORMATION
  Report Type: 
  Country: None (occurrence: None)
  Receive Date: 20080423
  Receipt Date: 20080421
  Transmission Date: 20081010
  Serious: Yes (Other)
  Sender: FDA-Public Use
  Company Number: D0056957A

PATIENT
  Age: 73 Year
  Sex: Male

DRUGS (1)
  1. REQUIP [Suspect]
     Indication: PARKINSONISM
     Route: 048
     Dates: start: 20080402

REACTIONS (1)
  - SLEEP ATTACKS [None]
